FAERS Safety Report 5024431-4 (Version None)
Quarter: 2006Q2

REPORT INFORMATION
  Report Type: 
  Country: None (occurrence: None)
  Receive Date: 20060607
  Receipt Date: 20060522
  Transmission Date: 20061013
  Serious: Yes (Death)
  Sender: FDA-Public Use
  Company Number: 225628

PATIENT
  Age: 70 Year
  Sex: Male

DRUGS (2)
  1. AVASTIN [Suspect]
     Indication: RECTAL CANCER
     Dosage: 502 MG, INTRAVENOUS
     Route: 042
     Dates: start: 20060119
  2. CAPECITABINE (CAPECITABINE) [Suspect]
     Indication: RECTAL CANCER
     Dosage: 3000 MG, QD, ORAL
     Route: 048
     Dates: start: 20060119

REACTIONS (1)
  - PNEUMONIA [None]
